FAERS Safety Report 7730023-6 (Version None)
Quarter: 2011Q3

REPORT INFORMATION
  Report Type: 
  Country: None (occurrence: None)
  Receive Date: 20110906
  Receipt Date: 20110824
  Transmission Date: 20111222
  Serious: Yes (Hospitalization)
  Sender: FDA-Public Use
  Company Number: PHHO2011BR05127

PATIENT
  Sex: Female
  Weight: 80 kg

DRUGS (2)
  1. CERTICAN [Suspect]
     Indication: RENAL TRANSPLANT
     Dosage: 0.75 MG, BID
     Route: 048
     Dates: start: 20091225
  2. NEORAL [Suspect]
     Indication: RENAL TRANSPLANT
     Dosage: 25 MG, BID
     Route: 048
     Dates: start: 20091225

REACTIONS (1)
  - POST PROCEDURAL HAEMATURIA [None]
